FAERS Safety Report 8135987-7 (Version None)
Quarter: 2012Q1

REPORT INFORMATION
  Report Type: 
  Country: None (occurrence: None)
  Receive Date: 20120214
  Receipt Date: 20120131
  Transmission Date: 20120608
  Serious: Yes (Hospitalization, Other)
  Sender: FDA-Public Use
  Company Number: CH-JNJFOC-20120206586

PATIENT
  Age: 25 Year
  Sex: Female

DRUGS (3)
  1. TOPIRAMATE [Suspect]
     Indication: STATUS EPILEPTICUS
     Route: 048
  2. CLONAZEPAM [Suspect]
     Indication: STATUS EPILEPTICUS
     Route: 065
  3. PHENYTOIN [Suspect]
     Indication: STATUS EPILEPTICUS
     Route: 065

REACTIONS (3)
  - DRUG INEFFECTIVE [None]
  - SEPSIS [None]
  - NEPHROLITHIASIS [None]
